FAERS Safety Report 16346257 (Version 1)
Quarter: 2019Q2

REPORT INFORMATION
  Report Type: Spontaneous
  Country: US (occurrence: US)
  Receive Date: 20190523
  Receipt Date: 20190523
  Transmission Date: 20190711
  Serious: No
  Sender: FDA-Public Use
  Company Number: US-PFIZER INC-2019215319

PATIENT
  Sex: Male

DRUGS (1)
  1. ZALEPLON. [Suspect]
     Active Substance: ZALEPLON
     Indication: SLEEP DISORDER
     Dosage: UNK [AROUND 9:30 OR 10:00 AT NIGHT]

REACTIONS (1)
  - Drug ineffective [Unknown]
